FAERS Safety Report 7128031-1 (Version None)
Quarter: 2010Q4

REPORT INFORMATION
  Report Type: 
  Country: None (occurrence: None)
  Receive Date: 20101130
  Receipt Date: 20101124
  Transmission Date: 20110411
  Serious: Yes (Death, Other)
  Sender: FDA-Public Use
  Company Number: US-PFIZER INC-2010088750

PATIENT
  Sex: Male
  Weight: 59.8 kg

DRUGS (2)
  1. SUTENT [Suspect]
     Indication: RENAL CELL CARCINOMA
     Dosage: 25 MG, UNK
     Route: 048
     Dates: start: 20100201, end: 20100601
  2. NEXIUM [Concomitant]
     Dosage: 40 MG, UNK

REACTIONS (7)
  - AGEUSIA [None]
  - BLISTER [None]
  - DEATH [None]
  - DIARRHOEA [None]
  - SKIN ULCER [None]
  - UNEVALUABLE EVENT [None]
  - WEIGHT DECREASED [None]
